FAERS Safety Report 23069097 (Version 1)
Quarter: 2023Q4

REPORT INFORMATION
  Report Type: Spontaneous
  Country: US (occurrence: None)
  Receive Date: 20231015
  Receipt Date: 20231015
  Transmission Date: 20240110
  Serious: No
  Sender: FDA-Public Use
  Company Number: None

PATIENT
  Age: 48 Year
  Sex: Female
  Weight: 63 kg

DRUGS (4)
  1. RHOFADE [Suspect]
     Active Substance: OXYMETAZOLINE HYDROCHLORIDE
     Indication: Erythema
     Dosage: OTHER STRENGTH : PERCENT;?OTHER QUANTITY : 2 DROP(S);?
     Route: 061
     Dates: start: 20231010, end: 20231014
  2. AJOVY [Concomitant]
     Active Substance: FREMANEZUMAB-VFRM
  3. Ubrelvey [Concomitant]
  4. ADVIL [Concomitant]
     Active Substance: IBUPROFEN

REACTIONS (3)
  - Migraine [None]
  - Paraesthesia [None]
  - Visual impairment [None]

NARRATIVE: CASE EVENT DATE: 20231014
